FAERS Safety Report 6830155-0 (Version None)
Quarter: 2010Q3

REPORT INFORMATION
  Report Type: 
  Country: None (occurrence: None)
  Receive Date: 20100711
  Receipt Date: 20100607
  Transmission Date: 20110219
  Serious: No
  Sender: FDA-Public Use
  Company Number: US-ALLERGAN-1007432US

PATIENT
  Sex: Female

DRUGS (5)
  1. LATISSE [Suspect]
     Indication: GROWTH OF EYELASHES
     Dosage: 1 GTT, QPM
     Dates: start: 20100524
  2. EYE CREAM [Concomitant]
  3. EYE MAKEUP [Concomitant]
  4. HORMONE PATCH [Concomitant]
  5. LUNESTA [Concomitant]

REACTIONS (1)
  - EYELASH DISCOLOURATION [None]
